FAERS Safety Report 25320207 (Version 2)
Quarter: 2025Q2

REPORT INFORMATION
  Report Type: Report from Study
  Country: IL (occurrence: IL)
  Receive Date: 20250515
  Receipt Date: 20250619
  Transmission Date: 20250717
  Serious: Yes (Death, Hospitalization, Other)
  Sender: CSL BEHRING
  Company Number: IL-BEH-2025204929

PATIENT
  Sex: Male
  Weight: 65 kg

DRUGS (16)
  1. KORSUVA [Suspect]
     Active Substance: DIFELIKEFALIN ACETATE
     Indication: Chronic kidney disease-associated pruritus
     Route: 065
     Dates: start: 20250212, end: 20250423
  2. ALFACALCIDOL [Concomitant]
     Active Substance: ALFACALCIDOL
  3. AMLODIPINE MALEATE [Concomitant]
     Active Substance: AMLODIPINE MALEATE
  4. Famo [Concomitant]
  5. FOLIC ACID [Concomitant]
     Active Substance: FOLIC ACID
  6. Fusid [Concomitant]
  7. DIETARY SUPPLEMENT [Concomitant]
     Active Substance: DIETARY SUPPLEMENT
  8. PLAVIX [Concomitant]
     Active Substance: CLOPIDOGREL BISULFATE
  9. RENVELA [Concomitant]
     Active Substance: SEVELAMER CARBONATE
  10. SIMVASTATIN [Concomitant]
     Active Substance: SIMVASTATIN
  11. TAMSULOSIN HYDROCHLORIDE [Concomitant]
     Active Substance: TAMSULOSIN HYDROCHLORIDE
  12. CYANOCOBALAMIN\PYRIDOXINE HYDROCHLORIDE\THIAMINE [Concomitant]
     Active Substance: CYANOCOBALAMIN\PYRIDOXINE HYDROCHLORIDE\THIAMINE
  13. VENOFER [Concomitant]
     Active Substance: IRON SUCROSE
  14. VITAMIN D [Concomitant]
     Active Substance: VITAMIN D NOS
  15. ERYTHROPOIETIN [Concomitant]
     Active Substance: ERYTHROPOIETIN
  16. HEPARIN [Concomitant]
     Active Substance: HEPARIN SODIUM

REACTIONS (7)
  - Septic shock [Fatal]
  - Infection [Unknown]
  - Skin infection [Unknown]
  - Hypotension [Unknown]
  - Asthenia [Unknown]
  - Psychotic disorder [Unknown]
  - Somnolence [Unknown]

NARRATIVE: CASE EVENT DATE: 20250101
